FAERS Safety Report 7089500-6 (Version None)
Quarter: 2010Q4

REPORT INFORMATION
  Report Type: 
  Country: None (occurrence: None)
  Receive Date: 20101108
  Receipt Date: 20101029
  Transmission Date: 20110411
  Serious: Yes (Death)
  Sender: FDA-Public Use
  Company Number: DE-BAYER-201043541GPV

PATIENT
  Age: 71 Year
  Sex: Male

DRUGS (5)
  1. CIPROFLOXACIN [Suspect]
     Indication: STAPHYLOCOCCAL SEPSIS
     Dosage: TOTAL DAILY DOSE: 500 MG
     Route: 042
  2. PIPERACILLIN/COMBACTAM [Suspect]
     Indication: STAPHYLOCOCCAL SEPSIS
     Dosage: TOTAL DAILY DOSE: 7.5 G
     Route: 042
  3. PIPERACILLIN/COMBACTAM [Suspect]
     Dosage: TOTAL DAILY DOSE: 7.5 G
     Route: 042
  4. VANCOMYCIN [Suspect]
     Indication: STAPHYLOCOCCAL SEPSIS
     Dosage: INITIAL DOSE
     Route: 042
  5. ACYCLOVIR SODIUM [Concomitant]
     Indication: HERPES ZOSTER
     Route: 042

REACTIONS (1)
  - STAPHYLOCOCCAL SEPSIS [None]
